FAERS Safety Report 7010025-8 (Version None)
Quarter: 2010Q3

REPORT INFORMATION
  Report Type: 
  Country: None (occurrence: None)
  Receive Date: 20100923
  Receipt Date: 20100908
  Transmission Date: 20110219
  Serious: Yes (Hospitalization, Other)
  Sender: FDA-Public Use
  Company Number: PHHY2010US33233

PATIENT
  Sex: Male
  Weight: 80 kg

DRUGS (9)
  1. RECLAST [Suspect]
     Indication: OSTEOPOROSIS
     Dosage: 5 MG
     Route: 042
     Dates: start: 20100311, end: 20100311
  2. VERAPAMIL [Concomitant]
     Indication: ARRHYTHMIA SUPRAVENTRICULAR
  3. NEXIUM [Concomitant]
     Indication: OESOPHAGEAL SPASM
     Dosage: 20 MG, QD
  4. AVASTIN [Concomitant]
     Indication: MACULAR DEGENERATION
  5. CARDIZEM [Concomitant]
     Dosage: 125MG 5 TIMES/WEEK
  6. AMBIEN [Concomitant]
     Dosage: 2.5 MG, QD
  7. MULTIVITAMIN [Concomitant]
     Dosage: 01 TAB /DAY
  8. VALTREX [Concomitant]
     Dosage: 400 MG, QD
  9. LASIX [Concomitant]
     Dosage: 40 MG, PRN

REACTIONS (25)
  - ASTHENIA [None]
  - CHILLS [None]
  - DECREASED APPETITE [None]
  - DEFAECATION URGENCY [None]
  - DIARRHOEA [None]
  - DISCOMFORT [None]
  - FATIGUE [None]
  - HYPOCHROMASIA [None]
  - LEUKOPENIA [None]
  - LOBAR PNEUMONIA [None]
  - LYMPHOCYTIC INFILTRATION [None]
  - MACROCYTOSIS [None]
  - MALAISE [None]
  - NAUSEA [None]
  - ORAL HERPES [None]
  - ORAL PRURITUS [None]
  - PALLOR [None]
  - PYREXIA [None]
  - RESPIRATORY RATE DECREASED [None]
  - SEPSIS [None]
  - STRESS [None]
  - TACHYCARDIA [None]
  - TACHYPNOEA [None]
  - TREMOR [None]
  - VOMITING [None]
